FAERS Safety Report 10040919 (Version 1)
Quarter: 2014Q1

REPORT INFORMATION
  Report Type: Spontaneous
  Country: US (occurrence: US)
  Receive Date: 20140327
  Receipt Date: 20140327
  Transmission Date: 20141002
  Serious: No
  Sender: FDA-Public Use
  Company Number: US-PFIZER INC-2014083343

PATIENT
  Sex: Male

DRUGS (3)
  1. AMLODIPINE BESILATE [Suspect]
     Dosage: UNK
  2. HYDRALAZINE HYDROCHLORIDE [Suspect]
  3. CLONIDINE [Suspect]

REACTIONS (1)
  - Drug hypersensitivity [Unknown]
